FAERS Safety Report 23510607 (Version 2)
Quarter: 2024Q1

REPORT INFORMATION
  Report Type: Spontaneous
  Country: US (occurrence: US)
  Receive Date: 20240211
  Receipt Date: 20240312
  Transmission Date: 20240409
  Serious: No
  Sender: FDA-Public Use
  Company Number: US-SA-SAC20240202000274

PATIENT
  Age: 65 Year
  Sex: Male
  Weight: 92 kg

DRUGS (1)
  1. DUPIXENT [Suspect]
     Active Substance: DUPILUMAB
     Indication: Dermatitis atopic
     Dosage: 300 MG, QW
     Route: 058
     Dates: start: 20240116

REACTIONS (4)
  - Pyrexia [Unknown]
  - Erythema [Unknown]
  - Tremor [Unknown]
  - Injection site rash [Unknown]

NARRATIVE: CASE EVENT DATE: 20240101
